FAERS Safety Report 9252903 (Version 2)
Quarter: 2013Q2

REPORT INFORMATION
  Report Type: Spontaneous
  Country: CA (occurrence: CA)
  Receive Date: 20130424
  Receipt Date: 20130613
  Transmission Date: 20140414
  Serious: Yes (Hospitalization)
  Sender: FDA-Public Use
  Company Number: CA-JHP PHARMACEUTICALS, LLC-JHP201300250

PATIENT
  Age: 13 Year
  Sex: Female
  Weight: 57 kg

DRUGS (3)
  1. ADRENALIN [Suspect]
     Indication: WRONG DRUG ADMINISTERED
     Dosage: 0.175 MG/KG (10 ML 1:1000)
     Route: 058
  2. PROPOFOL [Concomitant]
     Indication: INDUCTION AND MAINTENANCE OF ANAESTHESIA
  3. FENTANYL [Concomitant]
     Indication: INDUCTION AND MAINTENANCE OF ANAESTHESIA

REACTIONS (3)
  - Cardiac failure [Recovered/Resolved]
  - Wrong drug administered [Recovered/Resolved]
  - Overdose [Recovered/Resolved]
